FAERS Safety Report 5186346-0 (Version None)
Quarter: 2006Q4

REPORT INFORMATION
  Report Type: 
  Country: None (occurrence: None)
  Receive Date: 20061213
  Receipt Date: 20061204
  Transmission Date: 20070319
  Serious: Yes (Hospitalization)
  Sender: FDA-Public Use
  Company Number: 2006130703

PATIENT
  Age: 18 Year

DRUGS (1)
  1. NIFEDIPINE [Suspect]
     Dosage: 50 MG

REACTIONS (1)
  - OVERDOSE [None]
